FAERS Safety Report 6036476-6 (Version None)
Quarter: 2009Q1

REPORT INFORMATION
  Report Type: 
  Country: None (occurrence: None)
  Receive Date: 20090112
  Receipt Date: 20081224
  Transmission Date: 20090719
  Serious: Yes (Life-Threatening, Hospitalization)
  Sender: FDA-Public Use
  Company Number: 2008S1012678

PATIENT
  Age: 71 Year
  Sex: Female

DRUGS (1)
  1. SODIUM PHOSPHATE DIBASIC/SODIUM PHOSPHATE (SODIUM PHOSPHATE DIBASIC/SO [Suspect]
     Indication: CONSTIPATION
     Dosage: RTL
     Route: 054

REACTIONS (11)
  - APNOEA [None]
  - COMA [None]
  - CONVULSION [None]
  - HYPERNATRAEMIA [None]
  - HYPERPHOSPHATAEMIA [None]
  - HYPOCALCAEMIA [None]
  - HYPOKALAEMIA [None]
  - HYPOTONIA [None]
  - INCORRECT DOSE ADMINISTERED [None]
  - METABOLIC ACIDOSIS [None]
  - RENAL FAILURE [None]
